FAERS Safety Report 5569594-7 (Version None)
Quarter: 2007Q4

REPORT INFORMATION
  Report Type: 
  Country: None (occurrence: None)
  Receive Date: 20071220
  Receipt Date: 20071210
  Transmission Date: 20080405
  Serious: Yes (Life-Threatening)
  Sender: FDA-Public Use
  Company Number: GB-RANBAXY-2007RR-12016

PATIENT

DRUGS (3)
  1. IBUPROFEN TABLETS BP 400MG [Suspect]
     Indication: ARTHRITIS
     Dosage: 400 MG, TID
     Route: 048
  2. DESTRUSITOL XL [Concomitant]
     Indication: PROSTATIC DISORDER
     Dosage: 4 MG, QD
     Dates: start: 20020101
  3. FLOMAX [Concomitant]
     Indication: PROSTATIC DISORDER
     Dosage: 400 UG, QD

REACTIONS (2)
  - GASTRIC ULCER [None]
  - HAEMATEMESIS [None]
